FAERS Safety Report 21159606 (Version 4)
Quarter: 2023Q1

REPORT INFORMATION
  Report Type: Report from Study
  Country: US (occurrence: US)
  Receive Date: 20220802
  Receipt Date: 20230125
  Transmission Date: 20230418
  Serious: Yes (Hospitalization, Other)
  Sender: FDA-Public Use
  Company Number: US-ABBVIE-22K-163-4487043-00

PATIENT
  Sex: Female
  Weight: 105 kg

DRUGS (6)
  1. SKYRIZI [Suspect]
     Active Substance: RISANKIZUMAB-RZAA
     Indication: Psoriasis
     Dosage: FORM STRENGTH: 150 MILLIGRAM
     Route: 058
     Dates: start: 20220202, end: 20220202
  2. SKYRIZI [Suspect]
     Active Substance: RISANKIZUMAB-RZAA
     Dosage: FORM STRENGTH: 150 MILLIGRAM
     Route: 058
     Dates: start: 20220905
  3. SKYRIZI [Suspect]
     Active Substance: RISANKIZUMAB-RZAA
     Dosage: FORM STRENGTH: 150 MILLIGRAM
     Route: 058
     Dates: start: 20211115
  4. NOVOLOG [Concomitant]
     Active Substance: INSULIN ASPART
     Indication: Diabetes mellitus
  5. CARDURA [Concomitant]
     Active Substance: DOXAZOSIN MESYLATE
     Indication: Hypertension
  6. METOPROLOL [Concomitant]
     Active Substance: METOPROLOL
     Indication: Hypertension

REACTIONS (13)
  - Arterial occlusive disease [Recovering/Resolving]
  - Pruritus [Recovering/Resolving]
  - Vascular graft [Unknown]
  - Diabetes mellitus [Recovering/Resolving]
  - Staphylococcal infection [Recovered/Resolved]
  - Cardiac operation [Recovered/Resolved]
  - Postoperative wound infection [Recovered/Resolved]
  - Psoriasis [Recovering/Resolving]
  - Dyspnoea [Recovering/Resolving]
  - Skin exfoliation [Recovering/Resolving]
  - Impaired healing [Recovered/Resolved]
  - Impaired healing [Recovered/Resolved]
  - Wound [Recovered/Resolved]

NARRATIVE: CASE EVENT DATE: 20220101
